FAERS Safety Report 14988374 (Version 1)
Quarter: 2018Q2

REPORT INFORMATION
  Report Type: Spontaneous
  Country: GR (occurrence: GR)
  Receive Date: 20180608
  Receipt Date: 20180608
  Transmission Date: 20180711
  Serious: Yes (Hospitalization, Other)
  Sender: FDA-Public Use
  Company Number: GR-BIOGEN-2014BI139664

PATIENT
  Age: 58 Year
  Sex: Female
  Weight: 55 kg

DRUGS (1)
  1. TYSABRI [Suspect]
     Active Substance: NATALIZUMAB
     Indication: MULTIPLE SCLEROSIS
     Route: 042
     Dates: end: 20141222

REACTIONS (2)
  - Progressive multifocal leukoencephalopathy [Not Recovered/Not Resolved]
  - Septic shock [Unknown]

NARRATIVE: CASE EVENT DATE: 20150108
